FAERS Safety Report 17214464 (Version 1)
Quarter: 2019Q4

REPORT INFORMATION
  Report Type: Report from Study
  Country: US (occurrence: US)
  Receive Date: 20191230
  Receipt Date: 20191230
  Transmission Date: 20200122
  Serious: Yes (Hospitalization)
  Sender: FDA-Public Use
  Company Number: US-JNJFOC-20191237603

PATIENT
  Age: 22 Year
  Sex: Male

DRUGS (5)
  1. VRAYLAR [Concomitant]
     Active Substance: CARIPRAZINE
  2. BUPROPION. [Concomitant]
     Active Substance: BUPROPION
  3. VALPROIC ACID. [Concomitant]
     Active Substance: VALPROIC ACID
  4. SPRAVATO [Suspect]
     Active Substance: ESKETAMINE
     Indication: DEPRESSION
  5. CLONAZEPAM. [Concomitant]
     Active Substance: CLONAZEPAM

REACTIONS (2)
  - Suicidal ideation [Recovered/Resolved]
  - Dissociation [Recovered/Resolved]

NARRATIVE: CASE EVENT DATE: 20191210
